FAERS Safety Report 14385099 (Version 1)
Quarter: 2018Q1

REPORT INFORMATION
  Report Type: Other
  Country: US (occurrence: US)
  Receive Date: 20180115
  Receipt Date: 20180115
  Transmission Date: 20180509
  Serious: Yes (Death)
  Sender: FDA-Public Use
  Company Number: US-OSMOTICA_PHARMACEUTICAL_US_LLC-POI0573201800027

PATIENT
  Age: 89 Year
  Sex: Male

DRUGS (7)
  1. GLIPIZIDE. [Suspect]
     Active Substance: GLIPIZIDE
     Dates: end: 2016
  2. SITAGLIPTIN [Suspect]
     Active Substance: SITAGLIPTIN
     Dates: end: 2016
  3. QUETIAPINE. [Suspect]
     Active Substance: QUETIAPINE
     Dates: end: 2016
  4. WARFARIN [Suspect]
     Active Substance: WARFARIN
     Dates: end: 2016
  5. NIFEDIPINE EXTENDED-RELEASE TABLETS [Suspect]
     Active Substance: NIFEDIPINE
     Dates: end: 2016
  6. LOSARTAN. [Suspect]
     Active Substance: LOSARTAN
     Dates: end: 2016
  7. CITALOPRAM [Suspect]
     Active Substance: CITALOPRAM HYDROBROMIDE
     Dates: end: 2016

REACTIONS (1)
  - Completed suicide [Fatal]

NARRATIVE: CASE EVENT DATE: 2016
